FAERS Safety Report 9813403 (Version 1)
Quarter: 2014Q1

REPORT INFORMATION
  Report Type: Spontaneous
  Country: US (occurrence: US)
  Receive Date: 20140113
  Receipt Date: 20140113
  Transmission Date: 20141002
  Serious: Yes (Other)
  Sender: FDA-Public Use
  Company Number: US-ACTAVIS-2013-24224

PATIENT
  Age: 61 Year
  Sex: Female

DRUGS (2)
  1. BEVACIZUMAB [Concomitant]
     Indication: BREAST CANCER METASTATIC
     Dosage: UNK
  2. PACLITAXEL [Suspect]

REACTIONS (1)
  - Macular degeneration [Recovering/Resolving]
